FAERS Safety Report 17366042 (Version 2)
Quarter: 2020Q1

REPORT INFORMATION
  Report Type: Spontaneous
  Country: IT (occurrence: IT)
  Receive Date: 20200204
  Receipt Date: 20200218
  Transmission Date: 20200409
  Serious: Yes (Death, Life-Threatening, Other)
  Sender: FDA-Public Use
  Company Number: IT-JNJFOC-20200136892

PATIENT
  Age: 40 Year
  Sex: Male

DRUGS (5)
  1. HALDOL [Suspect]
     Active Substance: HALOPERIDOL
     Indication: MANIA
     Dosage: DOSED WITHIN RECOMMENDED RANGE
     Route: 048
  2. HALDOL [Interacting]
     Active Substance: HALOPERIDOL
     Route: 048
  3. CLOZAPINE. [Suspect]
     Active Substance: CLOZAPINE
     Indication: MANIA
     Dosage: DOSED WITHIN RECOMMENDED RANGE
     Route: 048
  4. VALPROIC ACID. [Suspect]
     Active Substance: VALPROIC ACID
     Indication: MANIA
     Dosage: DOSED WITHIN RECOMMENDED RANGE
     Route: 048
  5. PROMAZINE [Interacting]
     Active Substance: PROMAZINE
     Indication: MANIA
     Dosage: DOSED WITHIN RECOMMENDED RANGE
     Route: 048

REACTIONS (4)
  - Cardiac arrest [Fatal]
  - Drug level increased [Fatal]
  - Drug interaction [Fatal]
  - Toxicity to various agents [Fatal]
